FAERS Safety Report 19156424 (Version 1)
Quarter: 2021Q2

REPORT INFORMATION
  Report Type: Spontaneous
  Country: CA (occurrence: CA)
  Receive Date: 20210419
  Receipt Date: 20210419
  Transmission Date: 20210717
  Serious: Yes (Other)
  Sender: FDA-Public Use
  Company Number: CA-JNJFOC-20210424505

PATIENT
  Age: 54 Year
  Sex: Female

DRUGS (3)
  1. SALBUTAMOL [Concomitant]
     Active Substance: ALBUTEROL
     Indication: ASTHMA
  2. ASACOL [Concomitant]
     Active Substance: MESALAMINE
  3. INFLIXIMAB, RECOMBINANT [Suspect]
     Active Substance: INFLIXIMAB
     Indication: CROHN^S DISEASE
     Route: 042

REACTIONS (8)
  - Hypersensitivity [Recovered/Resolved]
  - Crohn^s disease [Recovered/Resolved]
  - Stress [Recovered/Resolved]
  - Headache [Recovered/Resolved]
  - Off label use [Recovered/Resolved]
  - Facial pain [Recovered/Resolved]
  - Pain in jaw [Recovered/Resolved]
  - Pruritus [Recovered/Resolved]
